FAERS Safety Report 8342718-4 (Version None)
Quarter: 2012Q2

REPORT INFORMATION
  Report Type: 
  Country: None (occurrence: None)
  Receive Date: 20120503
  Receipt Date: 20120416
  Transmission Date: 20120825
  Serious: Yes (Other)
  Sender: FDA-Public Use
  Company Number: 12000414

PATIENT
  Age: 88 Year
  Sex: Female

DRUGS (12)
  1. JANTOVEN [Suspect]
     Indication: ATRIAL FIBRILLATION
     Dosage: 5 MG, QD ON MON, WED, FRI   2.5 MG, QD ON TUE, THU, SAT, SUN
     Dates: start: 20111001
  2. JANTOVEN [Suspect]
     Indication: ATRIAL FIBRILLATION
     Dosage: 5 MG, QD ON MON, WED, FRI   2.5 MG, QD ON TUE, THU, SAT, SUN
     Dates: start: 20111001
  3. NEXIUM [Concomitant]
  4. SIMVASTATIN [Concomitant]
  5. ASPIRIN [Concomitant]
  6. BENICAR [Concomitant]
  7. ISOSORBIDE MONONITRATE [Concomitant]
  8. FUROSEMIDE [Concomitant]
  9. BACITRACIN W/NEOMYCIN/POLYMIXIN (BACITRACIN ZINC, NEOMYCIN SULFATE, PO [Concomitant]
  10. METOPROLOL TARTRATE [Concomitant]
  11. LORATADINE [Concomitant]
  12. FLONASE [Concomitant]

REACTIONS (1)
  - AGE-RELATED MACULAR DEGENERATION [None]
